FAERS Safety Report 23644890 (Version 3)
Quarter: 2024Q2

REPORT INFORMATION
  Report Type: Spontaneous
  Country: JP (occurrence: None)
  Receive Date: 20240318
  Receipt Date: 20240613
  Transmission Date: 20240716
  Serious: Yes (Hospitalization, Other)
  Sender: FDA-Public Use
  Company Number: 2024A061431

PATIENT
  Age: 80 Year
  Sex: Male

DRUGS (2)
  1. IMFINZI [Suspect]
     Active Substance: DURVALUMAB
     Indication: Hepatocellular carcinoma
     Dosage: DOSE UNKNOWN
     Route: 041
  2. IMJUDO [Suspect]
     Active Substance: TREMELIMUMAB\TREMELIMUMAB-ACTL
     Indication: Hepatocellular carcinoma
     Dosage: DOSE UNKNOWN
     Route: 041

REACTIONS (7)
  - Cytomegalovirus gastritis [Unknown]
  - Immune-mediated hypophysitis [Unknown]
  - Immune-mediated enterocolitis [Unknown]
  - Blood pressure decreased [Unknown]
  - Adrenocorticotropic hormone deficiency [Unknown]
  - Adrenal insufficiency [Unknown]
  - Steroid withdrawal syndrome [Unknown]
